FAERS Safety Report 8921208 (Version 3)
Quarter: 2012Q4

REPORT INFORMATION
  Report Type: 
  Country: JP (occurrence: JP)
  Receive Date: 20121123
  Receipt Date: 20121218
  Transmission Date: 20130627
  Serious: Yes (Hospitalization)
  Sender: FDA-Public Use
  Company Number: JP-SANOFI-AVENTIS-2012SA085038

PATIENT
  Age: 47 Year
  Sex: Male

DRUGS (3)
  1. LANTUS SOLOSTAR [Suspect]
     Indication: TYPE 2 DIABETES MELLITUS
     Dosage: dose in morning Dose:14 unit(s)
     Route: 058
     Dates: start: 2011, end: 20120104
  2. SOLOSTAR [Suspect]
     Indication: DEVICE THERAPY
     Route: 058
     Dates: start: 2011, end: 20120104
  3. JANUVIA [Suspect]
     Indication: TYPE 2 DIABETES MELLITUS
     Route: 065

REACTIONS (2)
  - Hypoglycaemic encephalopathy [Recovering/Resolving]
  - Loss of consciousness [Recovering/Resolving]
